FAERS Safety Report 7952309-2 (Version None)
Quarter: 2011Q4

REPORT INFORMATION
  Report Type: 
  Country: None (occurrence: None)
  Receive Date: 20111201
  Receipt Date: 20111121
  Transmission Date: 20120403
  Serious: Yes (Death, Hospitalization)
  Sender: FDA-Public Use
  Company Number: TR-ACTELION-A-CH2011-57340

PATIENT
  Age: 46 Year
  Sex: Female

DRUGS (4)
  1. TRACLEER [Suspect]
     Indication: PULMONARY ARTERIAL HYPERTENSION
     Dosage: 125 MG, BID
     Route: 048
     Dates: start: 20070713, end: 20110913
  2. TRACLEER [Suspect]
     Dosage: 62.5 MG, BID
     Route: 048
     Dates: start: 20070611, end: 20070712
  3. COUMADIN [Concomitant]
  4. LASIX [Concomitant]

REACTIONS (14)
  - INTERNATIONAL NORMALISED RATIO INCREASED [None]
  - BRAIN NATRIURETIC PEPTIDE INCREASED [None]
  - ASPARTATE AMINOTRANSFERASE INCREASED [None]
  - DISEASE PROGRESSION [None]
  - PULMONARY ARTERIAL HYPERTENSION [None]
  - PNEUMONIA [None]
  - RIGHT VENTRICULAR FAILURE [None]
  - HAEMOGLOBIN DECREASED [None]
  - HEPATIC CONGESTION [None]
  - LIVER FUNCTION TEST ABNORMAL [None]
  - RESPIRATORY FAILURE [None]
  - ALANINE AMINOTRANSFERASE INCREASED [None]
  - WHITE BLOOD CELL COUNT INCREASED [None]
  - CONDITION AGGRAVATED [None]
